FAERS Safety Report 11630232 (Version 1)
Quarter: 2015Q4

REPORT INFORMATION
  Report Type: Spontaneous
  Country: IT (occurrence: JP)
  Receive Date: 20151014
  Receipt Date: 20151014
  Transmission Date: 20160304
  Serious: Yes (Death)
  Sender: FDA-Public Use
  Company Number: IT-SIGMA-TAU US-2015STPI000637

PATIENT
  Age: 56 Year
  Sex: Female

DRUGS (4)
  1. LEVOCARNITINE. [Suspect]
     Active Substance: LEVOCARNITINE
     Indication: CARNITINE DEFICIENCY
     Dosage: 3000 MG, QD
     Route: 042
     Dates: start: 20140307
  2. MEROPENEM TRIHYDRATE [Concomitant]
     Active Substance: MEROPENEM
     Indication: PRODUCT USED FOR UNKNOWN INDICATION
  3. LEVOCARNITINE. [Suspect]
     Active Substance: LEVOCARNITINE
     Indication: HYPERAMMONAEMIA
     Dosage: 6000 MG, QD
     Route: 042
     Dates: start: 20140308, end: 20150324
  4. CEFMETAZOLE SODIUM [Concomitant]
     Active Substance: CEFMETAZOLE SODIUM
     Indication: PRODUCT USED FOR UNKNOWN INDICATION

REACTIONS (2)
  - Amylase increased [Unknown]
  - Death [Fatal]

NARRATIVE: CASE EVENT DATE: 20140310
